FAERS Safety Report 16787548 (Version 20)
Quarter: 2022Q2

REPORT INFORMATION
  Report Type: Spontaneous
  Country: GB (occurrence: GB)
  Receive Date: 20190909
  Receipt Date: 20220627
  Transmission Date: 20220721
  Serious: Yes (Hospitalization, Other)
  Sender: FDA-Public Use
  Company Number: GB-LDELTA-NLLD0031612

PATIENT
  Age: 55 Year
  Sex: Male

DRUGS (19)
  1. ATORVASTATIN [Suspect]
     Active Substance: ATORVASTATIN
     Indication: Product used for unknown indication
     Dosage: 120 MILLIGRAM, QD (TOOK 3 DAYS WORTH OF MEDICATION, START DATE: 27-MAR-2019)
     Route: 005
     Dates: end: 20190327
  2. ATORVASTATIN [Suspect]
     Active Substance: ATORVASTATIN
     Dosage: 120 MILLIGRAM, QD (TOOK 3 DAYS WORTH OF MEDICATION START DATE:27-MAR-2019)
     Route: 005
     Dates: end: 20190327
  3. METFORMIN [Suspect]
     Active Substance: METFORMIN HYDROCHLORIDE
     Indication: Product used for unknown indication
     Dosage: 3 GRAM, QD  (TOOK 3 DAYS WORTH OF MEDICATION, START DATE: 27-MAR-2019)
     Route: 065
     Dates: end: 20190327
  4. METFORMIN [Suspect]
     Active Substance: METFORMIN HYDROCHLORIDE
     Dosage: 120 MILLIGRAM, QD (TOOK 3 DAYS WORTH OF MEDICATION),
     Route: 065
     Dates: start: 20190327, end: 20190327
  5. RAMIPRIL [Suspect]
     Active Substance: RAMIPRIL
     Indication: Product used for unknown indication
     Dosage: 7.5 MILLIGRAM, QD/ START DATE: 27-MAR-2019, 7.5 MILLIGRAM (3 DAYS WORTH OF MEDICATION - OVERDOSE)
     Route: 065
     Dates: end: 20190327
  6. CLOZAPINE [Suspect]
     Active Substance: CLOZAPINE
     Indication: Product used for unknown indication
     Dosage: 1 GRAM, QD
     Route: 048
     Dates: start: 20050805, end: 201808
  7. CLOZAPINE [Suspect]
     Active Substance: CLOZAPINE
     Dosage: UNK
     Route: 048
     Dates: start: 20180828, end: 201811
  8. CLOZAPINE [Suspect]
     Active Substance: CLOZAPINE
     Dosage: UNK
     Route: 048
     Dates: start: 20181120, end: 201901
  9. CLOZAPINE [Suspect]
     Active Substance: CLOZAPINE
     Dosage: START DATE: 2019
     Route: 048
  10. CLOZAPINE [Suspect]
     Active Substance: CLOZAPINE
     Dosage: START DATE: 16-JAN-2019
     Route: 048
     Dates: end: 201903
  11. CLOZAPINE [Suspect]
     Active Substance: CLOZAPINE
     Dosage: 1 GRAM, QD/ START DATE: 27-MAR-2019
     Route: 048
     Dates: end: 20190327
  12. CLOZAPINE [Suspect]
     Active Substance: CLOZAPINE
     Dosage: 1 GRAM, QD (TOOK 3 DAYS WORTH OF MEDICATION OVERDOS)/17-MAR-2019
     Route: 048
     Dates: end: 20190317
  13. CLOZAPINE [Suspect]
     Active Substance: CLOZAPINE
     Dosage: 31-JUL-1990
     Route: 065
     Dates: end: 20050804
  14. CLOZAPINE [Suspect]
     Active Substance: CLOZAPINE
     Dosage: UNK
     Route: 048
     Dates: start: 20050805, end: 200508
  15. CLOZAPINE [Suspect]
     Active Substance: CLOZAPINE
     Dosage: UNK
     Route: 065
  16. CLOZAPINE [Suspect]
     Active Substance: CLOZAPINE
     Dosage: 1 GRAM, QD
     Route: 065
     Dates: start: 20180805
  17. CLOZAPINE [Suspect]
     Active Substance: CLOZAPINE
     Dosage: UNK
     Route: 048
     Dates: start: 20181126, end: 201901
  18. CLOZAPINE [Suspect]
     Active Substance: CLOZAPINE
     Dosage: UNK
     Route: 048
     Dates: start: 20180826, end: 201811
  19. ATORVASTATIN [Suspect]
     Active Substance: ATORVASTATIN
     Indication: Product used for unknown indication
     Dosage: 120 MILLIGRAM, QD, ONCE A DAY(120 MG, QD (TOOK 3 DAYS WORTH OF MEDICATION) START DATE: 27-MAR-2019
     Route: 005

REACTIONS (14)
  - Tricuspid valve incompetence [Unknown]
  - Pneumonia aspiration [Recovering/Resolving]
  - Tachycardia [Recovered/Resolved]
  - Body temperature decreased [Recovered/Resolved]
  - Hypotension [Recovered/Resolved]
  - Metabolic acidosis [Recovered/Resolved]
  - Blood glucose decreased [Recovered/Resolved]
  - White blood cell count increased [Unknown]
  - Neutrophil count increased [Unknown]
  - Drug abuse [Unknown]
  - Medication error [Unknown]
  - Intentional product misuse [Unknown]
  - Off label use [Unknown]
  - Overdose [Recovered/Resolved]

NARRATIVE: CASE EVENT DATE: 20190301
